FAERS Safety Report 11023510 (Version 1)
Quarter: 2015Q2

REPORT INFORMATION
  Report Type: Spontaneous
  Country: US (occurrence: US)
  Receive Date: 20150413
  Receipt Date: 20150413
  Transmission Date: 20150821
  Serious: No
  Sender: FDA-Public Use
  Company Number: US-PFIZER INC-2015123355

PATIENT
  Age: 57 Year
  Sex: Female
  Weight: 79.37 kg

DRUGS (6)
  1. TRAZODONE [Concomitant]
     Active Substance: TRAZODONE HYDROCHLORIDE
     Indication: SLEEP DISORDER
     Dosage: UNK, AS NEEDED
  2. LYRICA [Suspect]
     Active Substance: PREGABALIN
     Indication: FIBROMYALGIA
     Dosage: 150 MG, 2X/DAY
     Dates: end: 2015
  3. NAPROXEN. [Concomitant]
     Active Substance: NAPROXEN
     Dosage: 500 MG, 3X/DAY
  4. SKELAXIN [Concomitant]
     Active Substance: METAXALONE
     Indication: MUSCLE DISORDER
     Dosage: 800 MG, UNK
     Dates: start: 2001
  5. LITHIUM CARBONATE. [Concomitant]
     Active Substance: LITHIUM CARBONATE
     Dosage: 300 MG, 2X/DAY
  6. SKELAXIN [Concomitant]
     Active Substance: METAXALONE
     Dosage: 800 MG, 2X/DAY

REACTIONS (1)
  - Depression [Unknown]
